FAERS Safety Report 11704185 (Version 1)
Quarter: 2015Q4

REPORT INFORMATION
  Report Type: Report from Study
  Country: JP (occurrence: JP)
  Receive Date: 20151106
  Receipt Date: 20151106
  Transmission Date: 20160304
  Serious: Yes (Hospitalization)
  Sender: FDA-Public Use
  Company Number: PHHO2014JP015451

PATIENT
  Age: 70 Year
  Sex: Female
  Weight: 57 kg

DRUGS (26)
  1. FOLIAMIN [Concomitant]
     Active Substance: FOLIC ACID
     Indication: PROPHYLAXIS
     Dosage: UNK
     Dates: start: 20070123
  2. POPIYODON [Concomitant]
     Indication: SKIN ULCER
     Dosage: UNK
     Dates: start: 20120710
  3. DEXALTIN [Concomitant]
     Active Substance: DEXAMETHASONE
     Indication: STOMATITIS
     Dosage: UNK
     Dates: start: 20130509
  4. AIN457 [Suspect]
     Active Substance: SECUKINUMAB
     Indication: CARDIAC FAILURE
     Route: 058
     Dates: start: 20111004, end: 20131217
  5. CELESTAMINE [Concomitant]
     Active Substance: BETAMETHASONE\DEXCHLORPHENIRAMINE MALEATE
     Indication: URTICARIA
     Dosage: 1 UNK, UNK
     Route: 048
     Dates: start: 20110121
  6. DIGOSIN [Concomitant]
     Active Substance: DIGOXIN
     Dosage: 0.25 MG, UNK
     Dates: start: 20131224, end: 20131225
  7. LANSOPRAZOLE. [Concomitant]
     Active Substance: LANSOPRAZOLE
     Indication: PROPHYLAXIS
     Dosage: 15 MG, UNK
  8. AIN457 [Suspect]
     Active Substance: SECUKINUMAB
     Indication: RHEUMATOID ARTHRITIS
     Dosage: UNK
     Route: 058
     Dates: start: 20131001, end: 20131217
  9. FROBEN [Concomitant]
     Active Substance: FLURBIPROFEN
     Dosage: 80 MG, UNK
     Route: 048
     Dates: start: 19961007
  10. RHEUMATREX [Concomitant]
     Active Substance: METHOTREXATE SODIUM
     Indication: RHEUMATOID ARTHRITIS
     Dosage: UNK
     Route: 048
     Dates: start: 20051012
  11. CRAVIT [Concomitant]
     Active Substance: LEVOFLOXACIN
     Indication: INFECTION PROPHYLAXIS
     Dosage: UNK
     Route: 047
     Dates: start: 20130720
  12. CETAPRIL [Concomitant]
     Indication: HYPERTENSION
     Dosage: 50 MG, UNK
     Route: 048
  13. FAMOTIDINE. [Concomitant]
     Active Substance: FAMOTIDINE
     Indication: GASTRITIS
     Dosage: 20 MG, UNK
     Route: 048
     Dates: start: 20120515
  14. GENTACIN [Concomitant]
     Active Substance: GENTAMICIN SULFATE
     Indication: SKIN ULCER
     Dosage: UNK
     Dates: start: 20120612
  15. HIBON [Concomitant]
     Active Substance: RIBOFLAVIN
     Indication: STOMATITIS
     Dosage: 60 MG, UNK
     Route: 048
     Dates: start: 20130509
  16. IRSOGLADINE MALEATE [Concomitant]
     Active Substance: IRSOGLADINE MALEATE
     Indication: GASTRITIS
     Dosage: 4 MG, UNK
     Route: 048
     Dates: start: 20130514
  17. CARBAZOCHROME SODIUM SULFONATE [Concomitant]
     Active Substance: CARBAZOCHROME SODIUM SULFONATE
     Indication: HAEMORRHAGE
     Dosage: 120 MG, UNK
     Route: 048
     Dates: start: 20130806
  18. ALACEPRIL [Concomitant]
     Active Substance: ALACEPRIL
     Dosage: 50 MG, UNK
     Route: 048
     Dates: start: 20131224
  19. MOSAPRIDE CITRATE [Concomitant]
     Active Substance: MOSAPRIDE CITRATE
     Indication: PROPHYLAXIS
     Dosage: 15 MG, UNK
     Route: 048
     Dates: start: 20131225
  20. ADEFURONIC [Concomitant]
     Active Substance: DICLOFENAC SODIUM
     Indication: RHEUMATOID ARTHRITIS
     Dosage: UNK
     Dates: start: 20110913
  21. RINDERON VG [Concomitant]
     Active Substance: BETAMETHASONE VALERATE\GENTAMICIN SULFATE
     Indication: URTICARIA
     Dosage: UNK
     Dates: start: 20110506
  22. WARFARIN [Concomitant]
     Active Substance: WARFARIN
     Indication: ATRIAL FIBRILLATION
     Dosage: 1 MG, UNK
     Route: 048
  23. REBAMIPIDE [Concomitant]
     Active Substance: REBAMIPIDE
     Indication: PROPHYLAXIS
     Dosage: 200 MG, UNK
     Dates: start: 20131224
  24. UREPEARL [Concomitant]
     Active Substance: UREA
     Indication: XERODERMA
     Dosage: UNK
     Dates: start: 20121002
  25. BROMFENAC SODIUM HYDRATE [Concomitant]
     Indication: INFECTION PROPHYLAXIS
     Dosage: UNK
     Dates: start: 20130902
  26. ADONA [Concomitant]
     Active Substance: CARBAZOCHROME SODIUM SULFONATE
     Indication: HAEMORRHAGE
     Dosage: 60 MG, UNK
     Route: 048

REACTIONS (1)
  - Cholecystitis [Recovered/Resolved]

NARRATIVE: CASE EVENT DATE: 20140102
